FAERS Safety Report 10327766 (Version 3)
Quarter: 2015Q2

REPORT INFORMATION
  Report Type: Spontaneous
  Country: IE (occurrence: IE)
  Receive Date: 20140721
  Receipt Date: 20150626
  Transmission Date: 20150821
  Serious: Yes (Other)
  Sender: FDA-Public Use
  Company Number: IE-UCBSA-2014003823

PATIENT
  Age: 62 Year
  Sex: Female

DRUGS (8)
  1. FLUCONAZOLE. [Concomitant]
     Active Substance: FLUCONAZOLE
     Indication: ANTIFUNGAL TREATMENT
     Dosage: 50 MG, ONCE DAILY (QD) (X1/52)
     Route: 048
  2. LANSOPRAZOLE. [Concomitant]
     Active Substance: LANSOPRAZOLE
     Indication: ANTACID THERAPY
     Dosage: 30 MG, ONCE DAILY (QD)
     Route: 048
  3. KEPPRA [Suspect]
     Active Substance: LEVETIRACETAM
     Indication: EPILEPSY
     Dosage: 1500 G, OVER 24 HOURS CURRENTLY BEING DILUTED WITH SALIN 17ML
     Route: 058
     Dates: start: 20140610
  4. CHLORHEXIDINE [Concomitant]
     Active Substance: CHLORHEXIDINE
     Dosage: 5 ML, AS NEEDED (PRN)
     Route: 048
  5. MYCOSTATINE [Concomitant]
     Dosage: 3 ML, AS NEEDED (PRN)
     Route: 048
  6. DEXAMETHASONE. [Concomitant]
     Active Substance: DEXAMETHASONE
     Indication: INJECTION SITE REACTION
     Dosage: 0.5 G, UNK
     Route: 058
     Dates: start: 20140610
  7. DULOXETINE [Concomitant]
     Active Substance: DULOXETINE
     Indication: ANTIDEPRESSANT THERAPY
     Dosage: 60 MG, ONCE DAILY (QD)
     Route: 048
  8. EXEMESTANE. [Concomitant]
     Active Substance: EXEMESTANE
     Indication: NEOPLASM MALIGNANT
     Dosage: 25 MG, ONCE DAILY (QD)
     Route: 048

REACTIONS (2)
  - Incorrect route of drug administration [Unknown]
  - Injection site discolouration [Unknown]

NARRATIVE: CASE EVENT DATE: 2014
